FAERS Safety Report 19951939 (Version 1)
Quarter: 2021Q4

REPORT INFORMATION
  Report Type: Spontaneous
  Country: US (occurrence: US)
  Receive Date: 20211013
  Receipt Date: 20211013
  Transmission Date: 20220303
  Serious: Yes (Life-Threatening, Hospitalization)
  Sender: FDA-Public Use
  Company Number: US-MYLANLABS-2021M1071866

PATIENT
  Age: 15 Month
  Sex: Female

DRUGS (2)
  1. HYDROCORTISONE [Suspect]
     Active Substance: HYDROCORTISONE
     Indication: Myelitis transverse
     Dosage: UNK,STARTED ON HOSPITALISATION DAY 24
     Route: 065
  2. IMMUNE GLOBULIN NOS [Suspect]
     Active Substance: IMMUNE GLOBULIN NOS
     Indication: Myelitis transverse
     Dosage: STARTED ON HOSPITALISATION DAY 36
     Route: 042

REACTIONS (1)
  - Drug ineffective [Unknown]
